FAERS Safety Report 5422077-7 (Version None)
Quarter: 2007Q3

REPORT INFORMATION
  Report Type: 
  Country: None (occurrence: None)
  Receive Date: 20070822
  Receipt Date: 20070813
  Transmission Date: 20080115
  Serious: Yes (Other)
  Sender: FDA-Public Use
  Company Number: PHHO2006GB15545

PATIENT
  Age: 53 Year
  Sex: Female
  Weight: 56.4 kg

DRUGS (1)
  1. ZOLEDRONIC ACID [Suspect]
     Indication: METASTASES TO BONE
     Dosage: 4 MG, UNK
     Route: 042
     Dates: start: 20050622, end: 20060531

REACTIONS (6)
  - ABSCESS [None]
  - BONE FORMATION DECREASED [None]
  - EXCESSIVE GRANULATION TISSUE [None]
  - GINGIVAL INFECTION [None]
  - OSTEONECROSIS [None]
  - TOOTH EXTRACTION [None]
